FAERS Safety Report 16741563 (Version 2)
Quarter: 2020Q3

REPORT INFORMATION
  Report Type: Spontaneous
  Country: US (occurrence: US)
  Receive Date: 20190826
  Receipt Date: 20200831
  Transmission Date: 20201102
  Serious: No
  Sender: FDA-Public Use
  Company Number: US-ENDO PHARMACEUTICALS INC-2019-106143

PATIENT
  Age: 28 Year
  Sex: Male

DRUGS (3)
  1. BREVITAL SODIUM [Suspect]
     Active Substance: METHOHEXITAL SODIUM
     Dosage: 60 MG, SINGLE
     Route: 065
     Dates: start: 20190701, end: 20190701
  2. BREVITAL SODIUM [Suspect]
     Active Substance: METHOHEXITAL SODIUM
     Dosage: 90 MG, UNKNOWN
     Route: 065
  3. BREVITAL SODIUM [Suspect]
     Active Substance: METHOHEXITAL SODIUM
     Indication: ANAESTHESIA PROCEDURE
     Dosage: 90 MG, SINGLE
     Route: 065
     Dates: start: 20190701, end: 20190701

REACTIONS (2)
  - Off label use [Unknown]
  - Drug ineffective [Unknown]

NARRATIVE: CASE EVENT DATE: 20190701
